FAERS Safety Report 5078365-X (Version None)
Quarter: 2006Q3

REPORT INFORMATION
  Report Type: 
  Country: None (occurrence: None)
  Receive Date: 20060811
  Receipt Date: 20050314
  Transmission Date: 20061208
  Serious: Yes (Hospitalization)
  Sender: FDA-Public Use
  Company Number: JP-GLAXOSMITHKLINE-B0375028A

PATIENT
  Age: 66 Year
  Sex: Male

DRUGS (2)
  1. ORACEF [Suspect]
     Indication: DENTAL CARIES
     Dosage: 250MG PER DAY
     Route: 048
     Dates: start: 20050303, end: 20050303
  2. CALONAL [Suspect]
     Indication: DENTAL CARIES
     Dosage: 200MG PER DAY
     Route: 048
     Dates: start: 20050303, end: 20050303

REACTIONS (8)
  - ANAPHYLACTIC SHOCK [None]
  - BLOOD PRESSURE DECREASED [None]
  - DYSARTHRIA [None]
  - FLUSHING [None]
  - GENERALISED ERYTHEMA [None]
  - LOSS OF CONSCIOUSNESS [None]
  - SWELLING FACE [None]
  - WHITE BLOOD CELL COUNT INCREASED [None]
